FAERS Safety Report 4902422-9 (Version None)
Quarter: 2006Q1

REPORT INFORMATION
  Report Type: 
  Country: None (occurrence: None)
  Receive Date: 20060207
  Receipt Date: 20060124
  Transmission Date: 20060701
  Serious: Yes (Hospitalization)
  Sender: FDA-Public Use
  Company Number: US-AVENTIS-200610980US

PATIENT
  Age: 50 Year
  Sex: Female
  Weight: 162 kg

DRUGS (2)
  1. KETEK [Suspect]
     Indication: SINUSITIS
     Route: 048
     Dates: start: 20060105, end: 20060105
  2. ANTIVIRALS FOR SYSTEMIC USE [Concomitant]
     Indication: ACQUIRED IMMUNODEFICIENCY SYNDROME
     Dosage: DOSE: UNK

REACTIONS (4)
  - APHASIA [None]
  - FATIGUE [None]
  - MYASTHENIA GRAVIS [None]
  - PARALYSIS [None]
